FAERS Safety Report 11309494 (Version 1)
Quarter: 2015Q3

REPORT INFORMATION
  Report Type: Spontaneous
  Country: JP (occurrence: JP)
  Receive Date: 20150724
  Receipt Date: 20150724
  Transmission Date: 20151125
  Serious: Yes (Other)
  Sender: FDA-Public Use
  Company Number: JP-GLAXOSMITHKLINE-JP2015JPN104545

PATIENT
  Age: 75 Year

DRUGS (1)
  1. VOTRIENT [Suspect]
     Active Substance: PAZOPANIB HYDROCHLORIDE
     Indication: MALIGNANT FIBROUS HISTIOCYTOMA
     Dosage: UNK
     Route: 048

REACTIONS (4)
  - Malignant fibrous histiocytoma [Unknown]
  - Malaise [Unknown]
  - Decreased appetite [Unknown]
  - Pneumothorax [Unknown]
